FAERS Safety Report 8668118 (Version 3)
Quarter: 2012Q4

REPORT INFORMATION
  Report Type: 
  Country: US (occurrence: US)
  Receive Date: 20120717
  Receipt Date: 20121218
  Transmission Date: 20130627
  Serious: Yes (Other)
  Sender: FDA-Public Use
  Company Number: US-ACTELION-A-NJ2012-62724

PATIENT
  Age: 84 Year
  Sex: Male

DRUGS (2)
  1. TRACLEER [Suspect]
     Indication: PULMONARY ARTERIAL HYPERTENSION
     Dosage: UNK
     Route: 048
  2. ADCIRCA [Concomitant]

REACTIONS (5)
  - Chemotherapy [Unknown]
  - Anaemia [Unknown]
  - Dyspnoea [Unknown]
  - Transfusion [Unknown]
  - White blood cell count decreased [Unknown]
